FAERS Safety Report 22954454 (Version 2)
Quarter: 2023Q4

REPORT INFORMATION
  Report Type: Spontaneous
  Country: JP (occurrence: JP)
  Receive Date: 20230918
  Receipt Date: 20231022
  Transmission Date: 20240110
  Serious: No
  Sender: FDA-Public Use
  Company Number: JP-UCBJ-CD202309778UCBPHAPROD

PATIENT
  Sex: Male

DRUGS (1)
  1. LEVETIRACETAM [Suspect]
     Active Substance: LEVETIRACETAM
     Indication: Epilepsy
     Dosage: 1000 MILLIGRAM, PER DAY
     Route: 041

REACTIONS (2)
  - Therapeutic response decreased [Unknown]
  - Off label use [Unknown]
